FAERS Safety Report 5280799-5 (Version None)
Quarter: 2007Q1

REPORT INFORMATION
  Report Type: 
  Country: None (occurrence: None)
  Receive Date: 20070329
  Receipt Date: 20070315
  Transmission Date: 20070707
  Serious: Yes (Other)
  Sender: FDA-Public Use
  Company Number: US-ELI_LILLY_AND_COMPANY-US200703003151

PATIENT
  Age: 13 Year
  Sex: Male

DRUGS (5)
  1. STRATTERA [Suspect]
     Indication: ATTENTION DEFICIT/HYPERACTIVITY DISORDER
     Dosage: 25 MG, DAILY (1/D)
     Dates: start: 20030801, end: 20070123
  2. STRATTERA [Suspect]
     Dosage: 60 MG, DAILY (1/D)
     Dates: start: 20070124, end: 20070225
  3. STRATTERA [Suspect]
     Dosage: 40 MG, DAILY (1/D)
     Dates: start: 20070226, end: 20070312
  4. STRATTERA [Suspect]
     Dosage: 60 MG, DAILY (1/D)
     Dates: start: 20070313
  5. HUMATROPE [Concomitant]
     Indication: BLOOD GROWTH HORMONE
     Dosage: 2 MG, DAILY (1/D)

REACTIONS (5)
  - CONDUCT DISORDER [None]
  - CONVULSION [None]
  - GAZE PALSY [None]
  - TREMOR [None]
  - UNRESPONSIVE TO STIMULI [None]
